FAERS Safety Report 9247818 (Version 1)
Quarter: 2013Q1

REPORT INFORMATION
  Report Type: Spontaneous
  Country: US (occurrence: None)
  Receive Date: 20130305
  Receipt Date: 20130305
  Transmission Date: 20140127
  Serious: Yes (Hospitalization)
  Sender: FDA-Public Use
  Company Number: 163-21880-12052888

PATIENT
  Age: 82 Year
  Sex: Female

DRUGS (8)
  1. REVLIMID [Suspect]
     Indication: PLASMA CELL MYELOMA
     Dosage: 10 MG, DAILY FOR 21 DAYS 7 DAYS OFF, PO
     Dates: start: 20120330
  2. SPIRONOLACTONE (SPIRONOLACTONE) [Concomitant]
  3. SIMVASTATIN (SIMVASTATIN) [Concomitant]
  4. TOPROL XL (METOPROLOL SUCCINATE) [Concomitant]
  5. MACULAR HEALTH (ALL OTHER THERAPEUTIC PRODUCTS) [Concomitant]
  6. VITAMIN D (ERGOCALCIFEROL) [Concomitant]
  7. DEXAMETHASONE (DEXAMETHASONE) [Concomitant]
  8. ASA (ACETYLSALICYLIC ACID) [Concomitant]

REACTIONS (3)
  - Anaemia [None]
  - Neutropenia [None]
  - Muscle spasms [None]
